FAERS Safety Report 8976357 (Version 3)
Quarter: 2013Q3

REPORT INFORMATION
  Report Type: Report from Study
  Country: KR (occurrence: KR)
  Receive Date: 20121220
  Receipt Date: 20130807
  Transmission Date: 20140515
  Serious: Yes (Hospitalization)
  Sender: FDA-Public Use
  Company Number: KR-BRISTOL-MYERS SQUIBB COMPANY-17097049

PATIENT
  Age: 22 Year
  Sex: Male

DRUGS (1)
  1. ARIPIPRAZOLE IM DEPOT [Suspect]
     Indication: SCHIZOPHRENIA
     Dosage: RED TO 300 MG:1AUG12.?INCRES AGAIN TO 400MG?04JUN12-31JL:400MG?1AU-21OC:300MG?22OC-ONG:400MG
     Route: 030
     Dates: start: 20120704

REACTIONS (1)
  - Impulse-control disorder [Recovered/Resolved]
